FAERS Safety Report 14803454 (Version 1)
Quarter: 2018Q2

REPORT INFORMATION
  Report Type: Spontaneous
  Country: US (occurrence: US)
  Receive Date: 20180425
  Receipt Date: 20180425
  Transmission Date: 20180711
  Serious: No
  Sender: FDA-Public Use
  Company Number: US-009507513-1803USA012367

PATIENT
  Age: 22 Year
  Sex: Female
  Weight: 78.91 kg

DRUGS (1)
  1. NUVARING [Suspect]
     Active Substance: ETHINYL ESTRADIOL\ETONOGESTREL
     Indication: CONTRACEPTION
     Dosage: RING, 3 WEEKS IN, 1 WEEK OUT
     Route: 067
     Dates: start: 20180303

REACTIONS (3)
  - Pain in extremity [Unknown]
  - Incorrect drug administration duration [Unknown]
  - Fatigue [Unknown]

NARRATIVE: CASE EVENT DATE: 201803
